FAERS Safety Report 6992486-3 (Version None)
Quarter: 2010Q3

REPORT INFORMATION
  Report Type: 
  Country: None (occurrence: None)
  Receive Date: 20100917
  Receipt Date: 20100903
  Transmission Date: 20110219
  Serious: Yes (Hospitalization)
  Sender: FDA-Public Use
  Company Number: BR-MEDIMMUNE-MEDI-0011527

PATIENT
  Sex: Male
  Weight: 7 kg

DRUGS (5)
  1. SYNAGIS [Suspect]
     Indication: BRONCHOPULMONARY DYSPLASIA
     Route: 030
     Dates: start: 20100418, end: 20100418
  2. SYNAGIS [Suspect]
     Route: 030
  3. IPRATROPIUM BROMIDE [Concomitant]
     Route: 048
     Dates: start: 20091106
  4. BUDESONIDE [Concomitant]
     Route: 055
     Dates: start: 20100201
  5. ALBUTEROL SULFATE AUTOHALER [Concomitant]
     Route: 055
     Dates: start: 20100201

REACTIONS (7)
  - BRONCHIOLITIS [None]
  - COUGH [None]
  - DIARRHOEA [None]
  - DRUG INEFFECTIVE [None]
  - DYSPNOEA [None]
  - FATIGUE [None]
  - VOMITING [None]
